FAERS Safety Report 15578381 (Version 1)
Quarter: 2018Q4

REPORT INFORMATION
  Report Type: Spontaneous
  Country: US (occurrence: US)
  Receive Date: 20181029
  Receipt Date: 20181029
  Transmission Date: 20190205
  Serious: No
  Sender: FDA-Public Use
  Company Number: None

PATIENT
  Age: 66 Year
  Sex: Male

DRUGS (1)
  1. DAPSONE. [Suspect]
     Active Substance: DAPSONE
     Route: 048
     Dates: start: 20180621, end: 20180627

REACTIONS (4)
  - Dialysis [None]
  - Methaemoglobinaemia [None]
  - Delayed graft function [None]
  - Morganella test positive [None]

NARRATIVE: CASE EVENT DATE: 20180626
